FAERS Safety Report 7511373-5 (Version None)
Quarter: 2011Q2

REPORT INFORMATION
  Report Type: 
  Country: None (occurrence: None)
  Receive Date: 20110531
  Receipt Date: 20110118
  Transmission Date: 20111010
  Serious: Yes (Life-Threatening, Hospitalization)
  Sender: FDA-Public Use
  Company Number: US-BAYER-201030554NA

PATIENT
  Age: 36 Year
  Sex: Female
  Weight: 90.703 kg

DRUGS (5)
  1. IBUPROFEN [Concomitant]
  2. LABETALOL [Concomitant]
     Indication: HYPERTENSION
     Dosage: UNK
     Dates: start: 20070101, end: 20080101
  3. YAZ [Suspect]
     Indication: PRODUCT USED FOR UNKNOWN INDICATION
     Dosage: UNK UNK, UNK
     Route: 048
     Dates: start: 20071201, end: 20080801
  4. LISINOPRIL [Concomitant]
     Indication: HYPERTENSION
     Dosage: UNK
     Dates: start: 20080401, end: 20090901
  5. HYDROCHLOROTHIAZIDE [Concomitant]
     Indication: HYPERTENSION
     Dosage: UNK
     Dates: start: 20080401, end: 20090901

REACTIONS (4)
  - MYOCARDITIS [None]
  - DYSPNOEA [None]
  - ANGINA PECTORIS [None]
  - PULMONARY EMBOLISM [None]
